FAERS Safety Report 14600655 (Version 4)
Quarter: 2021Q4

REPORT INFORMATION
  Report Type: Spontaneous
  Country: BR (occurrence: BR)
  Receive Date: 20180305
  Receipt Date: 20211130
  Transmission Date: 20220304
  Serious: Yes (Disabling, Other)
  Sender: FDA-Public Use
  Company Number: BR-BIOMARINAP-BR-2018-117284

PATIENT
  Age: 17 Year
  Sex: Male
  Weight: 29 kg

DRUGS (3)
  1. ALDURAZYME [Suspect]
     Active Substance: LARONIDASE
     Indication: Mucopolysaccharidosis
     Dosage: UNK UNK, Q15D
     Route: 041
     Dates: start: 20070901
  2. ALDURAZYME [Suspect]
     Active Substance: LARONIDASE
     Dosage: UNK, QW
     Route: 041
  3. ALDURAZYME [Suspect]
     Active Substance: LARONIDASE
     Dosage: 0.58 MILLIGRAM/KILOGRAM, QOW
     Route: 041
     Dates: start: 2017

REACTIONS (12)
  - Umbilical hernia [Recovered/Resolved]
  - Musculoskeletal stiffness [Recovered/Resolved]
  - Gait inability [Recovered/Resolved]
  - Tracheal disorder [Not Recovered/Not Resolved]
  - Mental disorder [Unknown]
  - Cardiac valve disease [Recovered/Resolved]
  - Cardiac disorder [Unknown]
  - Illness [Unknown]
  - Surgery [Unknown]
  - Fatigue [Unknown]
  - Weight decreased [Unknown]
  - Product use issue [Unknown]

NARRATIVE: CASE EVENT DATE: 20130201
